FAERS Safety Report 19744430 (Version 3)
Quarter: 2022Q2

REPORT INFORMATION
  Report Type: Spontaneous
  Country: US (occurrence: US)
  Receive Date: 20210825
  Receipt Date: 20220420
  Transmission Date: 20220720
  Serious: No
  Sender: FDA-Public Use
  Company Number: US-PFIZER INC-2021907809

PATIENT
  Age: 54 Year
  Sex: Female

DRUGS (2)
  1. IBRANCE [Suspect]
     Active Substance: PALBOCICLIB
     Indication: Breast cancer female
     Dosage: 125 MG, CYCLIC (QD FOR 21 DAYS)
     Route: 048
     Dates: start: 20210508
  2. IBRANCE [Suspect]
     Active Substance: PALBOCICLIB
     Dosage: 125 MG
     Route: 048
     Dates: start: 20210601

REACTIONS (8)
  - Product dose omission issue [Unknown]
  - Cough [Unknown]
  - Dry eye [Unknown]
  - Eye pruritus [Unknown]
  - Lacrimation increased [Unknown]
  - Hypersensitivity [Unknown]
  - Fatigue [Unknown]
  - Alopecia [Unknown]
